FAERS Safety Report 7415712-5 (Version None)
Quarter: 2011Q2

REPORT INFORMATION
  Report Type: 
  Country: None (occurrence: None)
  Receive Date: 20110414
  Receipt Date: 20110408
  Transmission Date: 20111010
  Serious: Yes (Hospitalization)
  Sender: FDA-Public Use
  Company Number: US-BRISTOL-MYERS SQUIBB COMPANY-15651482

PATIENT
  Age: 62 Year
  Sex: Female

DRUGS (1)
  1. ABATACEPT [Suspect]
     Indication: RHEUMATOID ARTHRITIS

REACTIONS (5)
  - CANDIDIASIS [None]
  - PHARYNGEAL ABSCESS [None]
  - STREPTOCOCCAL INFECTION [None]
  - PLEURAL EFFUSION [None]
  - VIRAL UPPER RESPIRATORY TRACT INFECTION [None]
